FAERS Safety Report 24028255 (Version 1)
Quarter: 2024Q2

REPORT INFORMATION
  Report Type: Spontaneous
  Country: US (occurrence: US)
  Receive Date: 20240628
  Receipt Date: 20240628
  Transmission Date: 20240715
  Serious: Yes (Life-Threatening, Hospitalization)
  Sender: FDA-Public Use
  Company Number: US-STRIDES ARCOLAB LIMITED-2024SP007545

PATIENT
  Age: 43 Year
  Sex: Male

DRUGS (1)
  1. METHOTREXATE [Suspect]
     Active Substance: METHOTREXATE
     Indication: Psoriasis
     Dosage: 15 MILLIGRAM, QD FOR 3?WEEKS
     Route: 065

REACTIONS (20)
  - Hyperbilirubinaemia [Unknown]
  - Fall [Unknown]
  - Tachycardia [Unknown]
  - Jaundice [Unknown]
  - Nikolsky^s sign [Unknown]
  - Pharyngeal ulceration [Unknown]
  - Intentional product misuse [Unknown]
  - Neutropenia [Unknown]
  - Pancytopenia [Unknown]
  - Urinary tract infection [Unknown]
  - Acute kidney injury [Unknown]
  - Staphylococcal infection [Unknown]
  - Enterococcal infection [Unknown]
  - Septic shock [Unknown]
  - Respiratory failure [Unknown]
  - Renal failure [Unknown]
  - Candida infection [Unknown]
  - Hypotension [Unknown]
  - Skin lesion [Unknown]
  - Overdose [Unknown]
